FAERS Safety Report 9466518 (Version 2)
Quarter: 2013Q4

REPORT INFORMATION
  Report Type: Spontaneous
  Country: US (occurrence: US)
  Receive Date: 20130820
  Receipt Date: 20131023
  Transmission Date: 20140711
  Serious: Yes (Other)
  Sender: FDA-Public Use
  Company Number: US-TEVA-427147USA

PATIENT
  Age: 32 Year
  Sex: Female
  Weight: 75.36 kg

DRUGS (2)
  1. PARAGARD 380A [Suspect]
     Indication: CONTRACEPTION
     Route: 015
     Dates: start: 20130531, end: 20130730
  2. EXCEDRIN [Concomitant]
     Indication: MIGRAINE

REACTIONS (3)
  - Device dislocation [Recovered/Resolved]
  - Abdominal discomfort [Not Recovered/Not Resolved]
  - Muscle spasms [Not Recovered/Not Resolved]
